FAERS Safety Report 10110162 (Version 1)
Quarter: 2014Q2

REPORT INFORMATION
  Report Type: Spontaneous
  Country: US (occurrence: None)
  Receive Date: 20140423
  Receipt Date: 20140423
  Transmission Date: 20141212
  Serious: Yes (Other)
  Sender: FDA-Public Use
  Company Number: 20140150

PATIENT
  Age: 62 Year
  Sex: Female

DRUGS (8)
  1. INJECTAFER [Suspect]
     Indication: PRODUCT USED FOR UNKNOWN INDICATION
     Dosage: 750 MG IN 100 CC NSS IN 15 MIN
     Route: 042
     Dates: start: 20140114, end: 20140121
  2. BD INSULIN PEN [Concomitant]
  3. LANTUS SOLOSTAR(INSULIN GLARGINE) [Concomitant]
  4. TASIGNA (NILOTINIB) [Concomitant]
  5. FUROSEMIDE [Concomitant]
  6. GLYBURIDE [Concomitant]
  7. METFORMIN [Concomitant]
  8. ATORVASTATIN [Concomitant]

REACTIONS (8)
  - Dyspnoea [None]
  - Malaise [None]
  - Back pain [None]
  - Chest discomfort [None]
  - Throat tightness [None]
  - Nausea [None]
  - Tachycardia [None]
  - Urticaria [None]
